FAERS Safety Report 4785837-1 (Version None)
Quarter: 2005Q4

REPORT INFORMATION
  Report Type: 
  Country: None (occurrence: None)
  Receive Date: 20051003
  Receipt Date: 20050929
  Transmission Date: 20060501
  Serious: Yes (Death, Other)
  Sender: FDA-Public Use
  Company Number: PHBS2005JP14341

PATIENT
  Sex: Female

DRUGS (5)
  1. SANDIMMUNE [Suspect]
     Indication: BONE MARROW TRANSPLANT
     Route: 041
     Dates: start: 20050719, end: 20050729
  2. ARA-C [Concomitant]
     Indication: BONE MARROW TRANSPLANT
     Dosage: 3 G/D
  3. CYCLOPHOSPHAMIDE [Concomitant]
     Indication: BONE MARROW TRANSPLANT
     Dosage: 60 MG/D
  4. IRRADIATION [Concomitant]
     Indication: BONE MARROW TRANSPLANT
  5. TACROLIMUS [Concomitant]
     Indication: BONE MARROW TRANSPLANT

REACTIONS (7)
  - BRAIN HERNIATION [None]
  - CEREBRAL HAEMORRHAGE [None]
  - CONVULSION [None]
  - MONOPLEGIA [None]
  - PNEUMONIA [None]
  - PUPILS UNEQUAL [None]
  - TOXIC INDUCED ENCEPHALOPATHY [None]
